FAERS Safety Report 9153640 (Version 1)
Quarter: 2013Q1

REPORT INFORMATION
  Report Type: Spontaneous
  Country: US (occurrence: None)
  Receive Date: 20130306
  Receipt Date: 20130306
  Transmission Date: 20140127
  Serious: Yes (Life-Threatening, Hospitalization)
  Sender: FDA-Public Use
  Company Number: None

PATIENT
  Age: 38 Year
  Sex: Male

DRUGS (1)
  1. PEGLOTICASE [Suspect]
     Indication: GOUT
     Dosage: 8 MG ONCE IV
     Route: 042
     Dates: start: 20130214, end: 20130214

REACTIONS (6)
  - Jaundice [None]
  - Ocular icterus [None]
  - Tachycardia [None]
  - Haemolysis [None]
  - Anaemia [None]
  - Methaemoglobinaemia [None]
